FAERS Safety Report 13099833 (Version 1)
Quarter: 2017Q1

REPORT INFORMATION
  Report Type: Report from Study
  Country: US (occurrence: US)
  Receive Date: 20170110
  Receipt Date: 20170110
  Transmission Date: 20170428
  Serious: No
  Sender: FDA-Public Use
  Company Number: PHEH2016US034136

PATIENT
  Age: 61 Year
  Sex: Male
  Weight: 104.3 kg

DRUGS (2)
  1. COSENTYX [Suspect]
     Active Substance: SECUKINUMAB
     Indication: PRODUCT USED FOR UNKNOWN INDICATION
     Dosage: 300 MG, QW
     Route: 065
     Dates: start: 20161219
  2. COSENTYX [Suspect]
     Active Substance: SECUKINUMAB
     Dosage: 300 MG, QW
     Route: 065

REACTIONS (4)
  - Secretion discharge [Unknown]
  - Nasopharyngitis [Unknown]
  - Epistaxis [Recovering/Resolving]
  - Sinus congestion [Unknown]

NARRATIVE: CASE EVENT DATE: 20161221
